FAERS Safety Report 6654121-3 (Version None)
Quarter: 2010Q1

REPORT INFORMATION
  Report Type: 
  Country: None (occurrence: None)
  Receive Date: 20100324
  Receipt Date: 20100309
  Transmission Date: 20100710
  Serious: Yes (Other)
  Sender: FDA-Public Use
  Company Number: 2010SCPR000411

PATIENT
  Age: 65 Year
  Sex: Male

DRUGS (5)
  1. CABERGOLINE [Suspect]
     Indication: PARKINSON'S DISEASE
     Dosage: 4 MG, QD
  2. L-DOPA (LEVODOPA) [Concomitant]
  3. CARBIDOPA (CARBIDOPA) [Concomitant]
  4. BENSERAZIDE (BENSERAZIDE) [Concomitant]
  5. ENTACAPONE (ENTACAPONE) [Concomitant]

REACTIONS (7)
  - BLOOD LACTATE DEHYDROGENASE INCREASED [None]
  - JOINT SWELLING [None]
  - OEDEMA PERIPHERAL [None]
  - ORTHOSTATIC INTOLERANCE [None]
  - PLEURAL EFFUSION [None]
  - PLEURAL FIBROSIS [None]
  - PULMONARY TOXICITY [None]
